FAERS Safety Report 20437252 (Version 2)
Quarter: 2022Q1

REPORT INFORMATION
  Report Type: Spontaneous
  Country: JP (occurrence: JP)
  Receive Date: 20220207
  Receipt Date: 20220222
  Transmission Date: 20220423
  Serious: Yes (Hospitalization)
  Sender: FDA-Public Use
  Company Number: JP-NBI-J202202160BIPI

PATIENT
  Age: 89 Year
  Sex: Male

DRUGS (1)
  1. SPIRIVA [Suspect]
     Active Substance: TIOTROPIUM BROMIDE MONOHYDRATE
     Indication: Product used for unknown indication
     Dosage: FOA- INHALATION POWDER
     Route: 055

REACTIONS (3)
  - Dyspnoea [Unknown]
  - Dyspnoea [Unknown]
  - Cyanosis [Unknown]
